FAERS Safety Report 10249728 (Version 1)
Quarter: 2014Q2

REPORT INFORMATION
  Report Type: Spontaneous
  Country: GB (occurrence: GB)
  Receive Date: 20140620
  Receipt Date: 20140620
  Transmission Date: 20141212
  Serious: Yes (Death)
  Sender: FDA-Public Use
  Company Number: GB-IPSEN BIOPHARMACEUTICALS, INC.-2014-3067

PATIENT
  Age: 65 Year
  Sex: Male

DRUGS (1)
  1. SOMATULINE AUTOGEL 90MG [Suspect]
     Indication: NEUROENDOCRINE TUMOUR
     Dosage: NOT REPORTED
     Route: 058

REACTIONS (2)
  - Disease progression [Fatal]
  - Neuroendocrine tumour [None]
